FAERS Safety Report 6752334-3 (Version None)
Quarter: 2010Q2

REPORT INFORMATION
  Report Type: 
  Country: None (occurrence: None)
  Receive Date: 20100602
  Receipt Date: 20100601
  Transmission Date: 20101027
  Serious: Yes (Hospitalization)
  Sender: FDA-Public Use
  Company Number: GXKR2010DE06026

PATIENT
  Age: 71 Year
  Sex: Female
  Weight: 78 kg

DRUGS (3)
  1. FALITHROM (NGX) [Suspect]
     Indication: ATRIAL FIBRILLATION
     Dosage: 0.5-1-0.5-1-0.5-1-0.5 WEEKLY
     Route: 048
     Dates: start: 20091203, end: 20100504
  2. BISOPRODOL FUMARATE [Suspect]
     Indication: ATRIAL FIBRILLATION
     Dosage: 2.5 MG, QD
     Route: 048
     Dates: start: 20091203
  3. ACTONEL [Suspect]
     Indication: OSTEOPOROSIS
     Dosage: 35 MG, QD
     Route: 048
     Dates: start: 20080101, end: 20100505

REACTIONS (1)
  - ACUTE HEPATIC FAILURE [None]
